FAERS Safety Report 9692412 (Version 1)
Quarter: 2013Q4

REPORT INFORMATION
  Report Type: Spontaneous
  Country: US (occurrence: US)
  Receive Date: 20131118
  Receipt Date: 20131118
  Transmission Date: 20140711
  Serious: No
  Sender: FDA-Public Use
  Company Number: US-PFIZER INC-2013324356

PATIENT
  Age: 64 Year
  Sex: Male

DRUGS (4)
  1. AXITINIB [Suspect]
     Indication: METASTATIC RENAL CELL CARCINOMA
     Dosage: 5 MG, 2X/DAY, CYCLIC
  2. AXITINIB [Suspect]
     Dosage: 7 MG, 2X/DAY, CYCLIC
  3. AXITINIB [Suspect]
     Dosage: 5 MG, 2X/DAY, CYCLIC
  4. AXITINIB [Suspect]
     Dosage: 6 MG, 2X/DAY, CYCLIC

REACTIONS (4)
  - Diarrhoea [Unknown]
  - Fatigue [Unknown]
  - Blood pressure increased [Unknown]
  - Pain in extremity [Unknown]
